FAERS Safety Report 7916976-1 (Version None)
Quarter: 2011Q4

REPORT INFORMATION
  Report Type: 
  Country: None (occurrence: None)
  Receive Date: 20111116
  Receipt Date: 20111116
  Transmission Date: 20120403
  Serious: Yes (Hospitalization, Other)
  Sender: FDA-Public Use
  Company Number: None

PATIENT
  Age: 58 Year
  Sex: Female
  Weight: 53.523 kg

DRUGS (1)
  1. GAMMAGARD [Suspect]
     Indication: HYPOGAMMAGLOBULINAEMIA
     Dosage: 30 GRAMS
     Route: 041
     Dates: start: 20111109, end: 20111109

REACTIONS (16)
  - HYPERSENSITIVITY [None]
  - FORMICATION [None]
  - URTICARIA [None]
  - BLOOD PRESSURE INCREASED [None]
  - AGITATION [None]
  - INFUSION SITE MASS [None]
  - ASTHENIA [None]
  - COUGH [None]
  - PYREXIA [None]
  - PRURITUS [None]
  - INFUSION SITE PAIN [None]
  - EAR DISCOMFORT [None]
  - BURNING SENSATION [None]
  - HEADACHE [None]
  - FLUSHING [None]
  - PRODUCT CONTAMINATION [None]
